FAERS Safety Report 4515461-7 (Version None)
Quarter: 2004Q4

REPORT INFORMATION
  Report Type: 
  Country: None (occurrence: None)
  Receive Date: 20041201
  Receipt Date: 20041119
  Transmission Date: 20050328
  Serious: Yes (Other)
  Sender: FDA-Public Use
  Company Number: PHBS2004IN15649

PATIENT
  Age: 52 Year
  Sex: Female

DRUGS (5)
  1. ZOLEDRONIC ACID [Suspect]
     Indication: MULTIPLE MYELOMA
     Dosage: 4 MG
     Route: 042
  2. MELPHALAN [Concomitant]
     Route: 065
  3. PREDNISOLONE [Concomitant]
     Route: 065
  4. CALCIUM [Concomitant]
     Route: 048
  5. VITAMIN D3 [Concomitant]
     Route: 065

REACTIONS (5)
  - BLOOD CALCIUM DECREASED [None]
  - HYPOCALCAEMIA [None]
  - INCONTINENCE [None]
  - SOMNOLENCE [None]
  - TETANY [None]
